FAERS Safety Report 9258312 (Version 3)
Quarter: 2013Q4

REPORT INFORMATION
  Report Type: Spontaneous
  Country: MX (occurrence: MX)
  Receive Date: 20130426
  Receipt Date: 20131226
  Transmission Date: 20140711
  Serious: Yes (Other)
  Sender: FDA-Public Use
  Company Number: MX-BAYER-2013-049406

PATIENT
  Age: 36 Year
  Sex: Male

DRUGS (4)
  1. CIPROFLOXACIN [Suspect]
     Indication: SALMONELLOSIS
  2. AZATHIOPRINE [Concomitant]
  3. PREGABALIN [Concomitant]
  4. COPAXONE [Concomitant]
     Indication: MULTIPLE SCLEROSIS

REACTIONS (20)
  - Dyskinesia [Unknown]
  - Monoplegia [Unknown]
  - Drug ineffective [Unknown]
  - Tendon disorder [Unknown]
  - Pyrexia [Unknown]
  - Musculoskeletal stiffness [Unknown]
  - Asthenia [Not Recovered/Not Resolved]
  - Bone pain [Unknown]
  - Musculoskeletal stiffness [Unknown]
  - Coordination abnormal [Unknown]
  - Penile pain [Unknown]
  - Testicular pain [Unknown]
  - Bedridden [Unknown]
  - Food intolerance [Unknown]
  - Pain [Unknown]
  - Burning sensation [Unknown]
  - Tendon pain [Unknown]
  - Arthralgia [Unknown]
  - Coccydynia [Unknown]
  - Spinal pain [Unknown]
